FAERS Safety Report 4691271-5 (Version None)
Quarter: 2005Q2

REPORT INFORMATION
  Report Type: 
  Country: None (occurrence: None)
  Receive Date: 20050614
  Receipt Date: 20050531
  Transmission Date: 20051028
  Serious: Yes (Other)
  Sender: FDA-Public Use
  Company Number: 2005081515

PATIENT
  Age: 70 Year
  Sex: Female
  Weight: 72.5755 kg

DRUGS (2)
  1. BEXTRA [Suspect]
     Indication: ARTHRALGIA
     Dosage: 10 MG TO 20 MG (DAILY), ORAL
     Route: 048
     Dates: start: 20030401
  2. CARDIZEM [Concomitant]

REACTIONS (1)
  - TRANSIENT ISCHAEMIC ATTACK [None]
